FAERS Safety Report 10505160 (Version 2)
Quarter: 2015Q3

REPORT INFORMATION
  Report Type: Spontaneous
  Country: US (occurrence: US)
  Receive Date: 20140926
  Receipt Date: 20150930
  Transmission Date: 20151125
  Serious: Yes (Other)
  Sender: FDA-Public Use
  Company Number: US-MDCO-14-00087

PATIENT
  Age: 84 Year
  Sex: Male

DRUGS (6)
  1. CLEVIPREX [Suspect]
     Active Substance: CLEVIDIPINE
     Dosage: 3 MG/HR
     Route: 041
  2. CLEVIPREX [Suspect]
     Active Substance: CLEVIDIPINE
     Indication: MALIGNANT HYPERTENSION
     Dosage: 1 MG/HR
     Route: 041
  3. CLEVIPREX [Suspect]
     Active Substance: CLEVIDIPINE
     Dosage: 12 MG/HR
     Route: 041
     Dates: start: 20131109
  4. CLEVIPREX [Suspect]
     Active Substance: CLEVIDIPINE
     Dosage: 16 MG/HR
     Route: 041
  5. LIPITOR [Concomitant]
     Active Substance: ATORVASTATIN CALCIUM
     Indication: PRODUCT USED FOR UNKNOWN INDICATION
     Dosage: NOT REPORTED
  6. CLEVIPREX [Suspect]
     Active Substance: CLEVIDIPINE
     Dosage: 12 MG/HR
     Route: 041

REACTIONS (1)
  - Blood triglycerides increased [Unknown]

NARRATIVE: CASE EVENT DATE: 20131110
